FAERS Safety Report 9776255 (Version 1)
Quarter: 2013Q4

REPORT INFORMATION
  Report Type: Spontaneous
  Country: IT (occurrence: IT)
  Receive Date: 20131220
  Receipt Date: 20131220
  Transmission Date: 20140711
  Serious: Yes (Death)
  Sender: FDA-Public Use
  Company Number: IT-MYLANLABS-113AS20130506

PATIENT
  Age: 68 Year
  Sex: Male

DRUGS (3)
  1. LEVOFLOXACIN [Suspect]
     Indication: PNEUMONITIS
     Route: 042
  2. CEFTRIAXONE [Concomitant]
     Indication: PRODUCT USED FOR UNKNOWN INDICATION
  3. INFLUENZA [Concomitant]
     Indication: IMMUNISATION

REACTIONS (3)
  - Bronchostenosis [Fatal]
  - Dyspnoea [Fatal]
  - Hyperhidrosis [Fatal]
